FAERS Safety Report 6921036-2 (Version None)
Quarter: 2010Q3

REPORT INFORMATION
  Report Type: 
  Country: None (occurrence: None)
  Receive Date: 20100812
  Receipt Date: 20100805
  Transmission Date: 20110219
  Serious: Yes (Hospitalization)
  Sender: FDA-Public Use
  Company Number: FR-PFIZER INC-2010006769

PATIENT
  Age: 71 Year
  Sex: Male

DRUGS (10)
  1. TAHOR [Suspect]
     Indication: CARDIAC FAILURE
     Dosage: 10 MG, 1X/DAY
     Route: 048
  2. BISOPROLOL FUMARATE [Concomitant]
     Dosage: 3.75 MG, 1X/DAY
  3. PLAVIX [Concomitant]
     Dosage: UNK
  4. LASIX [Concomitant]
     Dosage: 10 MG, 1X/DAY
  5. LEVOTHYROXINE SODIUM [Concomitant]
     Dosage: 100 UG, 1X/DAY
  6. COMBIVENT [Concomitant]
     Dosage: UNK
  7. NEXIUM [Concomitant]
     Dosage: UNK
  8. CALCIPARINE [Concomitant]
     Dosage: UNK
  9. IMOVANE [Concomitant]
     Dosage: UNK
  10. IVABRADINE [Concomitant]
     Dosage: UNK

REACTIONS (1)
  - LIVER INJURY [None]
